FAERS Safety Report 5778794-2 (Version None)
Quarter: 2008Q2

REPORT INFORMATION
  Report Type: 
  Country: None (occurrence: None)
  Receive Date: 20080619
  Receipt Date: 20080612
  Transmission Date: 20081010
  Serious: Yes (Other)
  Sender: FDA-Public Use
  Company Number: PHEH2008US05380

PATIENT
  Sex: Female

DRUGS (2)
  1. FEMARA [Suspect]
  2. ARIMIDEX [Suspect]
     Dosage: SHORT PERIOD

REACTIONS (3)
  - ARTHRITIS [None]
  - BONE DENSITY DECREASED [None]
  - HIP SURGERY [None]
